FAERS Safety Report 6515701-9 (Version None)
Quarter: 2009Q4

REPORT INFORMATION
  Report Type: 
  Country: None (occurrence: None)
  Receive Date: 20091223
  Receipt Date: 20091222
  Transmission Date: 20100525
  Serious: Yes (Death)
  Sender: FDA-Public Use
  Company Number: US-EISAI INC.-E2020-05616-CLI-US

PATIENT
  Sex: Female
  Weight: 62 kg

DRUGS (8)
  1. E2020-SR [Suspect]
     Route: 048
     Dates: start: 20081202, end: 20091104
  2. ATENOLOL [Concomitant]
  3. LIPITOR [Concomitant]
  4. GEODON [Concomitant]
  5. NAMENDA [Concomitant]
  6. CYPROHEPTADINE HCL [Concomitant]
  7. COLACE [Concomitant]
  8. MULTI-VITAMINS [Concomitant]

REACTIONS (1)
  - DEMENTIA ALZHEIMER'S TYPE [None]
